FAERS Safety Report 21311005 (Version 3)
Quarter: 2024Q3

REPORT INFORMATION
  Report Type: Spontaneous
  Country: US (occurrence: None)
  Receive Date: 20220909
  Receipt Date: 20240906
  Transmission Date: 20241016
  Serious: No
  Sender: DOMPE FARMACEUTICI
  Company Number: US-ARIS GLOBAL-202112-2352

PATIENT
  Sex: Female

DRUGS (24)
  1. OXERVATE [Suspect]
     Active Substance: CENEGERMIN-BKBJ
     Indication: Neurotrophic keratopathy
     Route: 047
     Dates: start: 20211215, end: 20220209
  2. OXERVATE [Suspect]
     Active Substance: CENEGERMIN-BKBJ
     Route: 047
     Dates: start: 20220428, end: 20220627
  3. OXERVATE [Suspect]
     Active Substance: CENEGERMIN-BKBJ
     Route: 047
     Dates: start: 20220928
  4. OXERVATE [Suspect]
     Active Substance: CENEGERMIN-BKBJ
     Route: 047
     Dates: start: 20231002
  5. OXERVATE [Suspect]
     Active Substance: CENEGERMIN-BKBJ
     Route: 047
     Dates: start: 20240122
  6. OXERVATE [Suspect]
     Active Substance: CENEGERMIN-BKBJ
  7. OXERVATE [Suspect]
     Active Substance: CENEGERMIN-BKBJ
  8. OXERVATE [Suspect]
     Active Substance: CENEGERMIN-BKBJ
  9. OXERVATE [Suspect]
     Active Substance: CENEGERMIN-BKBJ
  10. OXERVATE [Suspect]
     Active Substance: CENEGERMIN-BKBJ
  11. OXERVATE [Suspect]
     Active Substance: CENEGERMIN-BKBJ
  12. OXERVATE [Suspect]
     Active Substance: CENEGERMIN-BKBJ
  13. OXERVATE [Suspect]
     Active Substance: CENEGERMIN-BKBJ
  14. OXERVATE [Suspect]
     Active Substance: CENEGERMIN-BKBJ
  15. OXERVATE [Suspect]
     Active Substance: CENEGERMIN-BKBJ
  16. VALACYCLOVIR [Concomitant]
     Active Substance: VALACYCLOVIR HYDROCHLORIDE
  17. METOPROLOL SUCCINATE [Concomitant]
     Active Substance: METOPROLOL SUCCINATE
     Dosage: EXTENDED RELEASE FOR 24 HOURS
  18. FLAREX [Concomitant]
     Active Substance: FLUOROMETHOLONE ACETATE
  19. OMEPRAZOLE [Concomitant]
     Active Substance: OMEPRAZOLE
  20. RAMIPRIL [Concomitant]
     Active Substance: RAMIPRIL
  21. PREDNISONE [Concomitant]
     Active Substance: PREDNISONE
  22. ATORVASTATIN CALCIUM [Concomitant]
     Active Substance: ATORVASTATIN CALCIUM
  23. ASPIRIN [Concomitant]
     Active Substance: ASPIRIN
  24. CLOPIDOGREL [Concomitant]
     Active Substance: CLOPIDOGREL BISULFATE

REACTIONS (8)
  - Accidental overdose [Unknown]
  - Device use issue [Unknown]
  - Product administration error [Not Recovered/Not Resolved]
  - Off label use [Unknown]
  - Product use issue [Unknown]
  - Product dose omission issue [Unknown]
  - Vision blurred [Unknown]
  - Intentional product misuse [Unknown]
